FAERS Safety Report 20758682 (Version 6)
Quarter: 2022Q3

REPORT INFORMATION
  Report Type: Report from Study
  Country: US (occurrence: None)
  Receive Date: 20220427
  Receipt Date: 20220901
  Transmission Date: 20221026
  Serious: Yes (Hospitalization)
  Sender: FDA-Public Use
  Company Number: US-ROCHE-3081888

PATIENT
  Age: 58 Year
  Sex: Female
  Weight: 57.1 kg

DRUGS (15)
  1. RITUXIMAB [Suspect]
     Active Substance: RITUXIMAB
     Indication: B-cell lymphoma
     Route: 041
     Dates: start: 20220329
  2. POLATUZUMAB VEDOTIN [Suspect]
     Active Substance: POLATUZUMAB VEDOTIN
     Indication: B-cell lymphoma
     Dosage: ON 19/APR/2022 SHE RECEIVED MOST RECENT DOSE OF POLATUZUMAB VEDOTIN PRIOR TO AE
     Route: 042
     Dates: start: 20220329
  3. CLONAZEPAM [Concomitant]
     Active Substance: CLONAZEPAM
     Route: 048
  4. ACETAMINOPHEN [Concomitant]
     Active Substance: ACETAMINOPHEN
     Dosage: SUBSEQUENT THERAPY RECEIVED ON 10/MAY/2022, 31/MAY/2022, 30/JUN/2022, 21/JUL/2022 AND 11/AUG/2022.
     Route: 048
     Dates: start: 20220329, end: 20220329
  5. DIPHENHYDRAMINE [Concomitant]
     Active Substance: DIPHENHYDRAMINE
     Dosage: SUBSEQUENT THERAPY RECEIVED ON 10/MAY/2022, 31/MAY/2022, 30/JUN/2022, 21/JUL/2022 AND 11/AUG/2022.
     Route: 048
     Dates: start: 20220329, end: 20220329
  6. ACETAZOLAMIDE [Concomitant]
     Active Substance: ACETAZOLAMIDE
     Route: 048
  7. TIZANIDINE [Concomitant]
     Active Substance: TIZANIDINE
     Route: 048
  8. AMITRIPTYLINE [Concomitant]
     Active Substance: AMITRIPTYLINE
     Route: 048
  9. AMITRIPTYLINE [Concomitant]
     Active Substance: AMITRIPTYLINE
     Route: 048
  10. ONDANSETRON [Concomitant]
     Active Substance: ONDANSETRON
     Dosage: SUBSEQUENT THERAPY RECEIVED ON 10/MAY/2022, 31/MAY/2022, 30/JUN/2022, 21/JUL/2022 AND 11/AUG/2022.
     Route: 042
     Dates: start: 20220420, end: 20220420
  11. MAGNESIUM SULFATE [Concomitant]
     Active Substance: MAGNESIUM SULFATE
     Route: 042
     Dates: start: 20220420, end: 20220420
  12. AZITHROMYCIN [Concomitant]
     Active Substance: AZITHROMYCIN
     Route: 048
     Dates: start: 20220420, end: 20220420
  13. POTASSIUM CHLORIDE [Concomitant]
     Active Substance: POTASSIUM CHLORIDE
     Route: 048
     Dates: start: 20220419, end: 20220419
  14. ALBUTEROL\IPRATROPIUM [Concomitant]
     Active Substance: ALBUTEROL\IPRATROPIUM
     Dosage: 2 PUFF
     Route: 055
     Dates: start: 20220420, end: 20220420
  15. METHYLPREDNISOLONE [Concomitant]
     Active Substance: METHYLPREDNISOLONE
     Route: 042
     Dates: start: 20220419, end: 20220419

REACTIONS (1)
  - Hypoxia [Not Recovered/Not Resolved]

NARRATIVE: CASE EVENT DATE: 20220419
